FAERS Safety Report 14338660 (Version 4)
Quarter: 2018Q3

REPORT INFORMATION
  Report Type: Report from Study
  Country: US (occurrence: US)
  Receive Date: 20171229
  Receipt Date: 20180726
  Transmission Date: 20181010
  Serious: Yes (Hospitalization)
  Sender: FDA-Public Use
  Company Number: US-ACTELION-A-NJ2017-164884

PATIENT
  Age: 81 Year
  Sex: Female
  Weight: 103.4 kg

DRUGS (2)
  1. OPSUMIT [Suspect]
     Active Substance: MACITENTAN
     Indication: PULMONARY ARTERIAL HYPERTENSION
     Dosage: 10 MG, QD
     Route: 048
     Dates: start: 20140826
  2. COUMADIN [Concomitant]
     Active Substance: WARFARIN SODIUM

REACTIONS (7)
  - Thrombosis prophylaxis [Unknown]
  - Brain operation [Unknown]
  - Pulmonary embolism [Unknown]
  - Memory impairment [Unknown]
  - Fluid retention [Unknown]
  - Confusional state [Unknown]
  - Pneumonia [Unknown]
